FAERS Safety Report 8121127-7 (Version None)
Quarter: 2012Q1

REPORT INFORMATION
  Report Type: 
  Country: None (occurrence: None)
  Receive Date: 20120203
  Receipt Date: 20120123
  Transmission Date: 20120608
  Serious: Yes (Hospitalization)
  Sender: FDA-Public Use
  Company Number: 1000025868

PATIENT
  Age: 59 Year
  Sex: Female

DRUGS (6)
  1. ESCITALOPRAM OXALATE [Suspect]
     Dosage: ORAL
     Route: 048
  2. VOLTAREN [Suspect]
     Dosage: 150 MG (50 MG, 3 IN 1 D), ORAL
     Route: 048
     Dates: start: 20110501, end: 20110501
  3. IMIGRAN (SUMATRIPTAN) (TABLETS) (SUMATRIPTAN) [Concomitant]
  4. DAFALGAN (PARACETAMOL) (TABLETS) (PARACETAMOL) [Concomitant]
  5. INDERAL (PROPRANOLOL HYDROCHLORIDE) (TABLETS) (PROPRANOLOL HYDROCHLORI [Concomitant]
  6. XANAX (ALPRAZOLAM) (TABLETS) (ALPRAZOLAM) [Concomitant]

REACTIONS (4)
  - GASTRIC ULCER [None]
  - ANAEMIA [None]
  - ASTHENIA [None]
  - OESOPHAGEAL HAEMORRHAGE [None]
